FAERS Safety Report 16186209 (Version 3)
Quarter: 2019Q4

REPORT INFORMATION
  Report Type: Spontaneous
  Country: CN (occurrence: CN)
  Receive Date: 20190411
  Receipt Date: 20191021
  Transmission Date: 20200122
  Serious: Yes (Life-Threatening, Hospitalization, Other)
  Sender: FDA-Public Use
  Company Number: CN-PFIZER INC-2019152969

PATIENT
  Age: 62 Year
  Sex: Male

DRUGS (5)
  1. ACARBOSE. [Concomitant]
     Active Substance: ACARBOSE
     Indication: DIABETES MELLITUS
     Dosage: UNK
  2. DIOVAN [Concomitant]
     Active Substance: VALSARTAN
     Indication: HYPERTENSION
     Dosage: UNK
  3. METHYLPREDNISOLONE SODIUM SUCCINATE. [Suspect]
     Active Substance: METHYLPREDNISOLONE SODIUM SUCCINATE
     Indication: DEMYELINATION
     Dosage: HIGH-DOSE PULSE INTRAVENOUS STEROIDS
     Route: 042
     Dates: start: 20171030, end: 20171104
  4. PREDNISONE. [Suspect]
     Active Substance: PREDNISONE
     Indication: DEMYELINATION
     Dosage: TABLETS 60MG PER DAY FOR 31 D
     Route: 048
     Dates: start: 20171030
  5. METHYLPREDNISOLONE SODIUM SUCCINATE. [Suspect]
     Active Substance: METHYLPREDNISOLONE SODIUM SUCCINATE
     Dosage: HIGH-DOSE PULSE INTRAVENOUS STEROIDS
     Route: 042
     Dates: start: 201711

REACTIONS (3)
  - Central nervous system lymphoma [Unknown]
  - Product use in unapproved indication [Unknown]
  - Disease progression [Unknown]

NARRATIVE: CASE EVENT DATE: 20171030
